FAERS Safety Report 7396757-0 (Version None)
Quarter: 2011Q2

REPORT INFORMATION
  Report Type: 
  Country: None (occurrence: None)
  Receive Date: 20110406
  Receipt Date: 20110328
  Transmission Date: 20111010
  Serious: Yes (Other)
  Sender: FDA-Public Use
  Company Number: US-ROCHE-768801

PATIENT
  Sex: Male
  Weight: 90.7 kg

DRUGS (19)
  1. PEGASYS [Suspect]
     Indication: HEPATITIS C
     Dosage: FORM: PRE-FILLED SYRINGE
     Route: 058
     Dates: start: 20110110, end: 20110325
  2. CLONAZEPAM [Concomitant]
     Dosage: 1-3 X DAY
  3. CLOTRIMAZOLE [Concomitant]
  4. CITALOPRAM HYDROBROMIDE [Concomitant]
  5. NADOLOL [Concomitant]
  6. RIBAVARIN [Suspect]
     Dosage: DOSAGE REDUCED
     Route: 048
     Dates: start: 20110228
  7. CAMPRAL [Concomitant]
  8. PROMETHAZINE [Concomitant]
  9. FUROSEMIDE [Concomitant]
  10. LACTULOSE [Concomitant]
  11. METHADONE HCL [Concomitant]
  12. SPIRONOLACTONE [Concomitant]
  13. MORPHINE [Concomitant]
  14. ZINC SULPHATE [Concomitant]
  15. NYSTATIN [Concomitant]
  16. PEGASYS [Suspect]
     Dosage: DOSAGE REDUCED
     Route: 058
     Dates: start: 20110325
  17. RIBAVARIN [Suspect]
     Indication: HEPATITIS C
     Route: 048
     Dates: start: 20110110, end: 20110228
  18. STRESS B COMPLEX [Concomitant]
  19. OMEPRAZOLE [Concomitant]

REACTIONS (4)
  - HEPATIC ENCEPHALOPATHY [None]
  - WHITE BLOOD CELL COUNT DECREASED [None]
  - AMMONIA INCREASED [None]
  - MEDICATION ERROR [None]
